FAERS Safety Report 13802212 (Version 11)
Quarter: 2019Q1

REPORT INFORMATION
  Report Type: Report from Study
  Country: US (occurrence: US)
  Receive Date: 20170727
  Receipt Date: 20190104
  Transmission Date: 20190417
  Serious: Yes (Hospitalization)
  Sender: FDA-Public Use
  Company Number: US-ACTELION-A-US2017-157255

PATIENT
  Age: 63 Year
  Sex: Female
  Weight: 80.73 kg

DRUGS (8)
  1. UPTRAVI [Suspect]
     Active Substance: SELEXIPAG
     Indication: PULMONARY ARTERIAL HYPERTENSION
     Dosage: 1000 MCG, BID
     Route: 048
  2. UPTRAVI [Suspect]
     Active Substance: SELEXIPAG
     Dosage: 600 MCG, BID
     Route: 048
     Dates: start: 201710
  3. COUMADIN [Concomitant]
     Active Substance: WARFARIN SODIUM
  4. DILTIAZEM. [Concomitant]
     Active Substance: DILTIAZEM
  5. OPSUMIT [Suspect]
     Active Substance: MACITENTAN
     Indication: PULMONARY ARTERIAL HYPERTENSION
     Dosage: 10 MG, QD
     Route: 048
     Dates: start: 20150204
  6. UPTRAVI [Suspect]
     Active Substance: SELEXIPAG
     Dosage: 600 MCG, BID
     Route: 048
  7. UPTRAVI [Suspect]
     Active Substance: SELEXIPAG
     Dosage: 800 MCG, BID
     Route: 048
  8. ADCIRCA [Concomitant]
     Active Substance: TADALAFIL

REACTIONS (29)
  - Renal impairment [Recovered/Resolved]
  - Pneumonia [Recovered/Resolved with Sequelae]
  - Fatigue [Not Recovered/Not Resolved]
  - Diarrhoea [Unknown]
  - Seasonal allergy [Unknown]
  - Fluid overload [Recovered/Resolved with Sequelae]
  - Abdominal discomfort [Unknown]
  - Sputum discoloured [Unknown]
  - Acute respiratory failure [Recovered/Resolved with Sequelae]
  - Myalgia [Unknown]
  - Cataract [Unknown]
  - Nasopharyngitis [Unknown]
  - Atrial fibrillation [Recovered/Resolved]
  - Dizziness [Unknown]
  - Headache [Unknown]
  - Musculoskeletal pain [Unknown]
  - Influenza like illness [Unknown]
  - Productive cough [Unknown]
  - Pyrexia [Recovered/Resolved with Sequelae]
  - Sinus disorder [Unknown]
  - Dehydration [Unknown]
  - Dyspnoea [Recovered/Resolved with Sequelae]
  - Cough [Recovered/Resolved with Sequelae]
  - Abdominal pain upper [Unknown]
  - Constipation [Unknown]
  - Back pain [Unknown]
  - Culture negative [Recovered/Resolved with Sequelae]
  - Respiratory tract congestion [Recovered/Resolved with Sequelae]
  - Malaise [Unknown]

NARRATIVE: CASE EVENT DATE: 20170628
